FAERS Safety Report 18372160 (Version 1)
Quarter: 2020Q4

REPORT INFORMATION
  Report Type: Spontaneous
  Country: US (occurrence: US)
  Receive Date: 20201012
  Receipt Date: 20201012
  Transmission Date: 20210114
  Serious: Yes (Other)
  Sender: FDA-Public Use
  Company Number: US-VIFOR (INTERNATIONAL) INC.-VIT-2020-08774

PATIENT
  Age: 71 Year
  Sex: Female
  Weight: 58.5 kg

DRUGS (1)
  1. VELPHORO [Suspect]
     Active Substance: SUCROFERRIC OXYHYDROXIDE
     Indication: PRODUCT USED FOR UNKNOWN INDICATION
     Route: 048
     Dates: start: 202007, end: 202008

REACTIONS (2)
  - Hypertension [Unknown]
  - Terminal state [Unknown]

NARRATIVE: CASE EVENT DATE: 2020
